FAERS Safety Report 9271124 (Version 3)
Quarter: 2013Q3

REPORT INFORMATION
  Report Type: Report from Study
  Country: US (occurrence: US)
  Receive Date: 20130506
  Receipt Date: 20130719
  Transmission Date: 20140515
  Serious: Yes (Other)
  Sender: FDA-Public Use
  Company Number: PHEH2013US007998

PATIENT
  Age: 59 Year
  Sex: Female
  Weight: 85 kg

DRUGS (7)
  1. GILENYA [Suspect]
     Indication: RELAPSING-REMITTING MULTIPLE SCLEROSIS
     Dosage: 0.5 MG, QD
     Route: 048
     Dates: start: 20130403, end: 20130407
  2. DOXAZOSIN [Concomitant]
     Indication: NEUROGENIC BLADDER
     Dosage: 4 MG, QD
     Route: 048
  3. BACLOFEN [Concomitant]
     Indication: MUSCLE SPASMS
     Dosage: 20 MG, TID
     Route: 048
  4. PROVIGIL//MODAFINIL [Concomitant]
     Indication: FATIGUE
     Dosage: 100 MG, QD
     Route: 048
  5. SERTRALINE [Concomitant]
     Indication: DEPRESSION
     Dosage: 100 MG, QD
     Route: 048
  6. SIMVASTATIN [Concomitant]
     Indication: BLOOD CHOLESTEROL INCREASED
     Dosage: 20 MG, QHS
     Route: 048
  7. SYNTHROID [Concomitant]
     Indication: HYPOTHYROIDISM
     Dosage: 88 UG, QD
     Route: 048

REACTIONS (7)
  - Nail bed bleeding [Recovering/Resolving]
  - Pain [Recovering/Resolving]
  - Skin discolouration [Recovered/Resolved]
  - Confusional state [Recovering/Resolving]
  - Feeling abnormal [Recovering/Resolving]
  - Hypotension [Recovered/Resolved]
  - Dizziness [Unknown]
